FAERS Safety Report 6676906-X (Version None)
Quarter: 2010Q2

REPORT INFORMATION
  Report Type: 
  Country: None (occurrence: None)
  Receive Date: 20100412
  Receipt Date: 20100329
  Transmission Date: 20101027
  Serious: Yes (Hospitalization)
  Sender: FDA-Public Use
  Company Number: CA-ELI_LILLY_AND_COMPANY-CA201003008194

PATIENT
  Age: 86 Year
  Sex: Female

DRUGS (12)
  1. FORTEO [Suspect]
     Indication: OSTEOPOROSIS
     Dosage: 20 UG, DAILY (1/D)
     Dates: start: 20100311, end: 20100301
  2. ATIVAN [Concomitant]
  3. CALCIUM [Concomitant]
  4. CITALOPRAM HYDROBROMIDE [Concomitant]
  5. AVAPRO [Concomitant]
  6. DOMPERIDONE [Concomitant]
  7. FESOFOR [Concomitant]
  8. LIPITOR [Concomitant]
  9. M-ESLON [Concomitant]
  10. PLAVIX [Concomitant]
  11. PREDNISONE TAB [Concomitant]
  12. KYTRIL [Concomitant]

REACTIONS (2)
  - NAUSEA [None]
  - PYREXIA [None]
